FAERS Safety Report 17520899 (Version 1)
Quarter: 2020Q1

REPORT INFORMATION
  Report Type: Spontaneous
  Country: US (occurrence: US)
  Receive Date: 20200309
  Receipt Date: 20200309
  Transmission Date: 20200409
  Serious: Yes (Hospitalization, Disabling)
  Sender: FDA-Public Use
  Company Number: None

PATIENT
  Age: 49 Year
  Sex: Male
  Weight: 74.84 kg

DRUGS (1)
  1. GADOLINIUM [Suspect]
     Active Substance: GADOLINIUM

REACTIONS (21)
  - Confusional state [None]
  - Vision blurred [None]
  - Muscle spasms [None]
  - Gastrointestinal disorder [None]
  - Ear haemorrhage [None]
  - Ear infection [None]
  - Vitreous floaters [None]
  - Amnesia [None]
  - Pain of skin [None]
  - Memory impairment [None]
  - Feeling abnormal [None]
  - Pain [None]
  - Rash [None]
  - Skin lesion [None]
  - Diplopia [None]
  - Headache [None]
  - Toxicity to various agents [None]
  - Drug screen positive [None]
  - Hypoaesthesia [None]
  - Sinus disorder [None]
  - Tinnitus [None]

NARRATIVE: CASE EVENT DATE: 20141007
